FAERS Safety Report 9563207 (Version 1)
Quarter: 2013Q3

REPORT INFORMATION
  Report Type: Spontaneous
  Country: US (occurrence: US)
  Receive Date: 20130927
  Receipt Date: 20130927
  Transmission Date: 20140515
  Serious: No
  Sender: FDA-Public Use
  Company Number: US-BRISTOL-MYERS SQUIBB COMPANY-19011022

PATIENT
  Age: 47 Year
  Sex: Male
  Weight: 134.24 kg

DRUGS (1)
  1. ONGLYZA TABS [Suspect]
     Dates: start: 201211

REACTIONS (3)
  - Drug ineffective [Unknown]
  - Feeling jittery [Unknown]
  - Visual impairment [Unknown]
